FAERS Safety Report 13837357 (Version 1)
Quarter: 2017Q3

REPORT INFORMATION
  Report Type: Spontaneous
  Country: US (occurrence: US)
  Receive Date: 20170804
  Receipt Date: 20170804
  Transmission Date: 20171127
  Serious: No
  Sender: FDA-Public Use
  Company Number: US-ROCHE-1095181

PATIENT
  Sex: Female

DRUGS (1)
  1. BONIVA [Suspect]
     Active Substance: IBANDRONATE SODIUM
     Indication: OSTEOPENIA
     Route: 048

REACTIONS (5)
  - Vomiting [Unknown]
  - Gastrooesophageal reflux disease [Unknown]
  - Nausea [Unknown]
  - Chills [Unknown]
  - Loss of personal independence in daily activities [Unknown]
